FAERS Safety Report 12945056 (Version 1)
Quarter: 2016Q4

REPORT INFORMATION
  Report Type: Spontaneous
  Country: US (occurrence: US)
  Receive Date: 20161116
  Receipt Date: 20161116
  Transmission Date: 20170207
  Serious: No
  Sender: FDA-Public Use
  Company Number: US-JNJFOC-20161016950

PATIENT
  Age: 71 Year
  Sex: Male
  Weight: 86.18 kg

DRUGS (2)
  1. MENS ROGAINE EXTRA STRENGTH [Suspect]
     Active Substance: MINOXIDIL
     Indication: ALOPECIA
     Dosage: OFF AND ON OVER THE COURSE OF A MONTH
     Route: 061
     Dates: start: 20161015, end: 20161017
  2. MENS ROGAINE EXTRA STRENGTH [Suspect]
     Active Substance: MINOXIDIL
     Indication: ALOPECIA
     Dosage: CAPFUL, FOR A MONTH
     Route: 061
     Dates: start: 20160918

REACTIONS (6)
  - Skin irritation [Not Recovered/Not Resolved]
  - Incorrect dose administered [Unknown]
  - Skin disorder [Recovered/Resolved]
  - Inappropriate schedule of drug administration [Unknown]
  - Rash macular [Unknown]
  - Scab [Recovered/Resolved]
